FAERS Safety Report 5896173-4 (Version None)
Quarter: 2008Q3

REPORT INFORMATION
  Report Type: 
  Country: None (occurrence: None)
  Receive Date: 20080827
  Receipt Date: 20080612
  Transmission Date: 20090109
  Serious: Yes (Hospitalization)
  Sender: FDA-Public Use
  Company Number: PHEH2008US05317

PATIENT
  Sex: Female

DRUGS (1)
  1. RECLAST [Suspect]

REACTIONS (4)
  - BACK PAIN [None]
  - MUSCULOSKELETAL CHEST PAIN [None]
  - MYALGIA [None]
  - PYREXIA [None]
